FAERS Safety Report 9696075 (Version 2)
Quarter: 2013Q4

REPORT INFORMATION
  Report Type: Spontaneous
  Country: US (occurrence: US)
  Receive Date: 20131119
  Receipt Date: 20131209
  Transmission Date: 20140711
  Serious: Yes (Death)
  Sender: FDA-Public Use
  Company Number: US-GLAXOSMITHKLINE-A1050274A

PATIENT
  Sex: Male

DRUGS (6)
  1. VOTRIENT [Suspect]
     Indication: NEOPLASM MALIGNANT
     Dosage: 200MG UNKNOWN
     Route: 065
     Dates: start: 201309, end: 201310
  2. ALBUTEROL [Concomitant]
  3. FENTANYL [Concomitant]
  4. HYDROCODONE [Concomitant]
  5. LORAZEPAM [Concomitant]
  6. SYMBICORT [Concomitant]

REACTIONS (1)
  - Malignant neoplasm progression [Fatal]
